FAERS Safety Report 6568289-0 (Version None)
Quarter: 2010Q1

REPORT INFORMATION
  Report Type: 
  Country: None (occurrence: None)
  Receive Date: 20100203
  Receipt Date: 20100120
  Transmission Date: 20100710
  Serious: Yes (Death, Congenital Anomaly)
  Sender: FDA-Public Use
  Company Number: FR-BAYER-201012891GPV

PATIENT
  Sex: Female

DRUGS (1)
  1. ULTRAVIST 370 [Suspect]
     Dosage: TOTAL DAILY DOSE: 50 ML
     Route: 064
     Dates: start: 20090422, end: 20090422

REACTIONS (3)
  - ABDOMINAL WALL ANOMALY [None]
  - CEREBRAL DYSGENESIS [None]
  - CONGENITAL ANOMALY [None]
